FAERS Safety Report 10021386 (Version 1)
Quarter: 2014Q1

REPORT INFORMATION
  Report Type: Spontaneous
  Country: US (occurrence: None)
  Receive Date: 20140318
  Receipt Date: 20140318
  Transmission Date: 20141002
  Serious: Yes (Life-Threatening, Hospitalization, Disabling, Other)
  Sender: FDA-Public Use
  Company Number: None

PATIENT
  Age: 43 Year
  Sex: Male
  Weight: 86.18 kg

DRUGS (1)
  1. ANDROGEL 1 % UNIMED [Suspect]
     Indication: LABORATORY TEST ABNORMAL
     Dosage: 1/2 PACKET ON SKIN ONCE A DAY, ONCE DAILY, APPLIED TO A SURFACE, USUALLY THE SKIN
     Route: 061
     Dates: start: 20101028, end: 20131030

REACTIONS (1)
  - Myocardial infarction [None]
